FAERS Safety Report 20331940 (Version 1)
Quarter: 2022Q1

REPORT INFORMATION
  Report Type: Spontaneous
  Country: HK (occurrence: HK)
  Receive Date: 20220113
  Receipt Date: 20220113
  Transmission Date: 20220423
  Serious: Yes (Life-Threatening, Hospitalization)
  Sender: FDA-Public Use
  Company Number: HK-PFIZER INC-202200001198

PATIENT
  Age: 27 Year
  Sex: Female

DRUGS (7)
  1. LIDOCAINE HYDROCHLORIDE [Suspect]
     Active Substance: LIDOCAINE HYDROCHLORIDE
     Indication: Local anaesthesia
     Dosage: 100MG IN 5ML
     Route: 058
     Dates: start: 20211127, end: 20211127
  2. AUGMENTIN [Suspect]
     Active Substance: AMOXICILLIN\CLAVULANATE POTASSIUM
     Indication: Prophylaxis
     Dosage: 1.2 G, 3X/DAY
     Route: 042
     Dates: start: 20211127
  3. AUGMENTIN [Suspect]
     Active Substance: AMOXICILLIN\CLAVULANATE POTASSIUM
     Dosage: 1.2 G
     Route: 042
     Dates: start: 20211127, end: 20211127
  4. SYNTOCINON [Concomitant]
     Active Substance: OXYTOCIN
     Indication: Labour induction
     Dosage: 40 IU, 4X/DAY
     Route: 042
     Dates: start: 20211127, end: 20211127
  5. SYNTOCINON [Concomitant]
     Active Substance: OXYTOCIN
     Indication: Uterine contractions during pregnancy
  6. SYNTOMETRINE [ERGOMETRINE MALEATE;OXYTOCIN] [Concomitant]
     Indication: Uterine contractions during pregnancy
     Dosage: 1 ML
     Route: 030
     Dates: start: 20211127, end: 20211127
  7. MEPERIDINE [Concomitant]
     Active Substance: MEPERIDINE
     Indication: Analgesic therapy
     Dosage: 75 MG
     Route: 030
     Dates: start: 20211127, end: 20211127

REACTIONS (1)
  - Anaphylactic shock [Recovered/Resolved]

NARRATIVE: CASE EVENT DATE: 20211127
